FAERS Safety Report 7275938-0 (Version None)
Quarter: 2011Q1

REPORT INFORMATION
  Report Type: 
  Country: None (occurrence: None)
  Receive Date: 20110204
  Receipt Date: 20110131
  Transmission Date: 20110831
  Serious: Yes (Death)
  Sender: FDA-Public Use
  Company Number: A0897084A

PATIENT
  Sex: Female

DRUGS (3)
  1. AVANDIA [Suspect]
     Route: 048
  2. NITROGLYCERIN [Concomitant]
  3. NITROGLYCERIN [Concomitant]

REACTIONS (3)
  - CARDIAC FAILURE [None]
  - RENAL FAILURE ACUTE [None]
  - DIABETIC COMPLICATION [None]
